FAERS Safety Report 9837233 (Version 1)
Quarter: 2013Q4

REPORT INFORMATION
  Report Type: Spontaneous
  Country: GB (occurrence: None)
  Receive Date: 20131121
  Receipt Date: 20131121
  Transmission Date: 20140711
  Serious: Yes (Life-Threatening)
  Sender: FDA-Public Use
  Company Number: E2B_00001105

PATIENT
  Age: 6 Month
  Sex: Male
  Weight: 8.5 kg

DRUGS (4)
  1. CEFOTAXIME [Suspect]
     Indication: LOWER RESPIRATORY TRACT INFECTION
     Dates: start: 20130705, end: 20130705
  2. CLARITHROMYCIN [Concomitant]
  3. MORPHINE [Concomitant]
  4. MIDAZOLAM [Concomitant]

REACTIONS (2)
  - Tachycardia [None]
  - Rash maculo-papular [None]
